FAERS Safety Report 7876612-X (Version None)
Quarter: 2011Q4

REPORT INFORMATION
  Report Type: 
  Country: None (occurrence: None)
  Receive Date: 20111031
  Receipt Date: 20111026
  Transmission Date: 20120403
  Serious: Yes (Other)
  Sender: FDA-Public Use
  Company Number: US-AMGEN-USASP2011054003

PATIENT
  Age: 84 Year
  Sex: Male
  Weight: 67.574 kg

DRUGS (10)
  1. OMEPRAZOLE [Concomitant]
     Dosage: 10 UNK, UNK
  2. PRAVASTATIN [Concomitant]
     Dosage: 20 MG, UNK
  3. NPLATE [Suspect]
     Indication: IDIOPATHIC THROMBOCYTOPENIC PURPURA
     Dosage: 68 MUG, UNK
     Route: 058
     Dates: start: 20110727, end: 20110916
  4. CLARITIN                           /00413701/ [Concomitant]
     Dosage: 10 MG, UNK
  5. GABAPENTIN [Concomitant]
     Dosage: 600 MG, UNK
  6. ISOSORBIDE MONONITRATE [Concomitant]
     Dosage: 10 MG, UNK
  7. PRAVACHOL [Concomitant]
     Dosage: 10 MG, UNK
  8. ASPIRIN [Concomitant]
     Dosage: 81 MG, UNK
  9. ALEVE [Concomitant]
  10. NAPROXEN [Concomitant]
     Dosage: 500 MG, UNK

REACTIONS (9)
  - DRUG INTOLERANCE [None]
  - ARTHRITIS [None]
  - SQUAMOUS CELL CARCINOMA OF SKIN [None]
  - MUSCULOSKELETAL DISCOMFORT [None]
  - HYPERSENSITIVITY [None]
  - POOR QUALITY SLEEP [None]
  - NIGHTMARE [None]
  - GOUT [None]
  - MYALGIA [None]
